FAERS Safety Report 23597380 (Version 2)
Quarter: 2024Q1

REPORT INFORMATION
  Report Type: Report from Study
  Country: HN (occurrence: HN)
  Receive Date: 20240305
  Receipt Date: 20240319
  Transmission Date: 20240410
  Serious: Yes (Other)
  Sender: FDA-Public Use
  Company Number: HN-BIOGEN-2023BI01238624

PATIENT
  Age: 20 Year
  Sex: Female
  Weight: 95.45 kg

DRUGS (6)
  1. AVONEX [Suspect]
     Active Substance: INTERFERON BETA-1A
     Indication: Relapsing multiple sclerosis
     Route: 050
     Dates: start: 20200101
  2. AVONEX [Suspect]
     Active Substance: INTERFERON BETA-1A
     Route: 050
     Dates: start: 202106
  3. AVONEX [Suspect]
     Active Substance: INTERFERON BETA-1A
  4. AVONEX [Suspect]
     Active Substance: INTERFERON BETA-1A
  5. DESLORATADINE [Concomitant]
     Active Substance: DESLORATADINE
     Indication: Multiple allergies
     Route: 050
  6. Glisulin [Concomitant]
     Indication: Polycystic ovaries
     Route: 050
     Dates: start: 2022

REACTIONS (4)
  - Aspergillus infection [Recovered/Resolved]
  - Deafness [Recovered/Resolved]
  - Abdominal discomfort [Unknown]
  - Granuloma [Not Recovered/Not Resolved]

NARRATIVE: CASE EVENT DATE: 20201210
